FAERS Safety Report 4928718-2 (Version None)
Quarter: 2006Q1

REPORT INFORMATION
  Report Type: 
  Country: None (occurrence: None)
  Receive Date: 20060301
  Receipt Date: 20060223
  Transmission Date: 20060701
  Serious: Yes (Other)
  Sender: FDA-Public Use
  Company Number: US-JNJFOC-20060205561

PATIENT
  Sex: Female

DRUGS (18)
  1. INFLIXIMAB [Suspect]
     Indication: RHEUMATOID ARTHRITIS
     Route: 042
  2. AMBIEN [Concomitant]
  3. HYDROCODONE [Concomitant]
  4. IMDUR [Concomitant]
  5. LASIX [Concomitant]
  6. LEVOTHYROXINE SODIUM [Concomitant]
  7. LOPRESSOR [Concomitant]
  8. LOTREL [Concomitant]
  9. LOTREL [Concomitant]
  10. METHOTREXATE [Concomitant]
  11. PREDNISONE [Concomitant]
  12. POTASSIUM [Concomitant]
  13. PRILOSEC [Concomitant]
  14. XANAX [Concomitant]
  15. LIPITOR [Concomitant]
  16. FORTEO [Concomitant]
  17. LEXAPRO [Concomitant]
  18. NITROGLYCERIN [Concomitant]

REACTIONS (1)
  - BASAL CELL CARCINOMA [None]
